FAERS Safety Report 21145044 (Version 2)
Quarter: 2022Q3

REPORT INFORMATION
  Report Type: Spontaneous
  Country: CA (occurrence: CA)
  Receive Date: 20220729
  Receipt Date: 20220816
  Transmission Date: 20221026
  Serious: Yes (Other)
  Sender: FDA-Public Use
  Company Number: CA-JNJFOC-20220756121

PATIENT
  Age: 39 Year
  Sex: Female
  Weight: 100 kg

DRUGS (7)
  1. REMICADE [Suspect]
     Active Substance: INFLIXIMAB
     Indication: Crohn^s disease
     Route: 041
  2. CEFIXIME [Concomitant]
     Active Substance: CEFIXIME
  3. CONCERTA [Concomitant]
     Active Substance: METHYLPHENIDATE HYDROCHLORIDE
  4. INDOMETHACIN [Concomitant]
     Active Substance: INDOMETHACIN
  5. LYRICA [Concomitant]
     Active Substance: PREGABALIN
  6. PREDNISONE [Concomitant]
     Active Substance: PREDNISONE
  7. SERTRALINE [Concomitant]
     Active Substance: SERTRALINE HYDROCHLORIDE

REACTIONS (10)
  - Defaecation urgency [Not Recovered/Not Resolved]
  - Confusional state [Not Recovered/Not Resolved]
  - Faeces soft [Not Recovered/Not Resolved]
  - Swelling [Not Recovered/Not Resolved]
  - Abdominal distension [Not Recovered/Not Resolved]
  - Clostridium difficile infection [Not Recovered/Not Resolved]
  - COVID-19 [Not Recovered/Not Resolved]
  - Condition aggravated [Not Recovered/Not Resolved]
  - Fatigue [Not Recovered/Not Resolved]
  - Drug ineffective [Not Recovered/Not Resolved]
